FAERS Safety Report 6786978-X (Version None)
Quarter: 2010Q2

REPORT INFORMATION
  Report Type: 
  Country: None (occurrence: None)
  Receive Date: 20100621
  Receipt Date: 20100604
  Transmission Date: 20101027
  Serious: Yes (Other)
  Sender: FDA-Public Use
  Company Number: JP-1182283

PATIENT

DRUGS (1)
  1. TRAVATAN Z [Suspect]
     Indication: GLAUCOMA
     Dosage: OPHTHALMIC
     Route: 047

REACTIONS (1)
  - UVEITIS [None]
